FAERS Safety Report 20299343 (Version 1)
Quarter: 2022Q1

REPORT INFORMATION
  Report Type: Spontaneous
  Country: US (occurrence: None)
  Receive Date: 20220104
  Receipt Date: 20220104
  Transmission Date: 20220423
  Serious: Yes (Death)
  Sender: FDA-Public Use
  Company Number: None

PATIENT
  Sex: Male

DRUGS (22)
  1. ABIRATERONE ACETATE [Suspect]
     Active Substance: ABIRATERONE ACETATE
     Indication: Prostate cancer
     Dosage: FREQUENCY : DAILY;?
     Route: 048
  2. TYLENOL WITH CODEINE [Concomitant]
     Active Substance: ACETAMINOPHEN\CODEINE PHOSPHATE
  3. ALLOPURINOL [Concomitant]
     Active Substance: ALLOPURINOL
  4. ATENOLOL [Concomitant]
     Active Substance: ATENOLOL
  5. LIPITOR [Concomitant]
     Active Substance: ATORVASTATIN CALCIUM
  6. BICALUTAMIDE [Concomitant]
     Active Substance: BICALUTAMIDE
  7. CANNABIDIOL [Concomitant]
     Active Substance: CANNABIDIOL
  8. CHLORTHALIDONE [Concomitant]
     Active Substance: CHLORTHALIDONE
  9. CELEXA [Concomitant]
     Active Substance: CITALOPRAM HYDROBROMIDE
  10. DONEPEZIL [Concomitant]
     Active Substance: DONEPEZIL
  11. EUTHYROX [Concomitant]
     Active Substance: LEVOTHYROXINE SODIUM
  12. FAMOTIDINE [Concomitant]
     Active Substance: FAMOTIDINE
  13. FENTANYL [Concomitant]
     Active Substance: FENTANYL
  14. GABAPENTIN [Concomitant]
     Active Substance: GABAPENTIN
  15. KETOROLAC [Concomitant]
     Active Substance: KETOROLAC TROMETHAMINE
  16. MECLIZINE [Concomitant]
     Active Substance: MECLIZINE HYDROCHLORIDE
  17. NARCAN [Concomitant]
     Active Substance: NALOXONE HYDROCHLORIDE
  18. NORCO [Concomitant]
     Active Substance: ACETAMINOPHEN\HYDROCODONE BITARTRATE
  19. OFLOXACIN [Concomitant]
     Active Substance: OFLOXACIN
  20. ORGOVYX [Concomitant]
     Active Substance: RELUGOLIX
  21. POTASSIUM CHLORIDE [Concomitant]
     Active Substance: POTASSIUM CHLORIDE
  22. PREDNISONE [Concomitant]
     Active Substance: PREDNISONE

REACTIONS (1)
  - Death [None]
